FAERS Safety Report 11400223 (Version 1)
Quarter: 2015Q3

REPORT INFORMATION
  Report Type: Spontaneous
  Country: US (occurrence: US)
  Receive Date: 20150820
  Receipt Date: 20150820
  Transmission Date: 20151125
  Serious: No
  Sender: FDA-Public Use
  Company Number: US-AMGEN-USASP2015084197

PATIENT
  Age: 62 Year
  Sex: Male

DRUGS (1)
  1. ENBREL [Suspect]
     Active Substance: ETANERCEPT
     Indication: PSORIATIC ARTHROPATHY
     Dosage: UNK UNK, QWK (EACH SATURDAY MORNING)
     Route: 065

REACTIONS (6)
  - Erythema [Unknown]
  - Animal bite [Unknown]
  - Contusion [Unknown]
  - Induration [Unknown]
  - Mass [Unknown]
  - Tenderness [Unknown]

NARRATIVE: CASE EVENT DATE: 2015
